FAERS Safety Report 22265511 (Version 1)
Quarter: 2023Q2

REPORT INFORMATION
  Report Type: Spontaneous
  Country: FR (occurrence: None)
  Receive Date: 20230428
  Receipt Date: 20230428
  Transmission Date: 20230722
  Serious: Yes (Hospitalization)
  Sender: FDA-Public Use
  Company Number: 2023A091674

PATIENT
  Age: 34 Year
  Sex: Female

DRUGS (5)
  1. QUETIAPINE [Suspect]
     Active Substance: QUETIAPINE
     Dosage: 10 PILLS OF 300 MG
     Route: 048
     Dates: start: 20230324
  2. FLURBIPROFEN [Suspect]
     Active Substance: FLURBIPROFEN
     Dosage: 2 PILLS OF 100 MG
     Route: 048
     Dates: start: 20230325
  3. ZOPICLONE [Suspect]
     Active Substance: ZOPICLONE
     Dosage: 12 PILLS OF 7.5 MG
     Route: 048
     Dates: start: 20230324
  4. DIAZEPAM [Suspect]
     Active Substance: DIAZEPAM
     Dosage: 10 PILLS OF 10 MG
     Dates: start: 20230325
  5. IBUPROFEN [Suspect]
     Active Substance: IBUPROFEN
     Dosage: 9 PILLS OF 400 MG
     Route: 048
     Dates: start: 20230324

REACTIONS (2)
  - Toxicity to various agents [Recovered/Resolved]
  - Somnolence [Unknown]

NARRATIVE: CASE EVENT DATE: 20230325
